FAERS Safety Report 4511471-4 (Version None)
Quarter: 2004Q4

REPORT INFORMATION
  Report Type: 
  Country: None (occurrence: None)
  Receive Date: 20041129
  Receipt Date: 20040823
  Transmission Date: 20050328
  Serious: Yes (Hospitalization)
  Sender: FDA-Public Use
  Company Number: US-BRISTOL-MYERS SQUIBB COMPANY-12681342

PATIENT
  Age: 14 Year
  Sex: Female

DRUGS (2)
  1. ABILIFY [Suspect]
     Indication: MAJOR DEPRESSION
     Dosage: DECREASED TO 2.5 MG/DAY, THEN DISCONTINUED
     Route: 048
  2. ZYPREXA [Concomitant]
     Dates: start: 20040701

REACTIONS (2)
  - HEART RATE INCREASED [None]
  - HYPOTENSION [None]
